FAERS Safety Report 6076493-3 (Version None)
Quarter: 2009Q1

REPORT INFORMATION
  Report Type: 
  Country: None (occurrence: None)
  Receive Date: 20090211
  Receipt Date: 20090130
  Transmission Date: 20090719
  Serious: Yes (Other)
  Sender: FDA-Public Use
  Company Number: 231121K09USA

PATIENT
  Age: 56 Year
  Sex: Female
  Weight: 100 kg

DRUGS (2)
  1. REBIF [Suspect]
     Indication: MULTIPLE SCLEROSIS
     Dosage: 44 MCG, 3 IN 1 WEEKS, SUBCUTANEOUS
     Route: 058
     Dates: start: 20060731
  2. ALEVE (CAPLET) [Concomitant]

REACTIONS (6)
  - CHOLECYSTITIS INFECTIVE [None]
  - CHOLELITHIASIS [None]
  - FAT TISSUE INCREASED [None]
  - LIVER DISORDER [None]
  - LIVER FUNCTION TEST ABNORMAL [None]
  - SCAR [None]
